FAERS Safety Report 18335717 (Version 1)
Quarter: 2020Q4

REPORT INFORMATION
  Report Type: Report from Study
  Country: CR (occurrence: CR)
  Receive Date: 20201001
  Receipt Date: 20201001
  Transmission Date: 20210113
  Serious: Yes (Other)
  Sender: FDA-Public Use
  Company Number: NVSC2020CR263761

PATIENT
  Sex: Female

DRUGS (5)
  1. COREG [Suspect]
     Active Substance: CARVEDILOL
     Indication: PRODUCT USED FOR UNKNOWN INDICATION
     Dosage: UNK UNK, QD (1 OF 12.5 MG)
     Route: 048
     Dates: start: 2015
  2. ELIQUIS [Concomitant]
     Active Substance: APIXABAN
     Indication: PRODUCT USED FOR UNKNOWN INDICATION
     Dosage: 5 MG
     Route: 048
     Dates: start: 2015
  3. LOVASTATIN. [Suspect]
     Active Substance: LOVASTATIN
     Indication: PRODUCT USED FOR UNKNOWN INDICATION
     Dosage: UNK (2 OF 20 MG) (AT NIGHT)
     Route: 048
     Dates: start: 2015
  4. DIGOXIN. [Suspect]
     Active Substance: DIGOXIN
     Indication: PRODUCT USED FOR UNKNOWN INDICATION
     Dosage: UNK UNK, QD (1 OF 0.25 MG)
     Route: 048
     Dates: start: 2015
  5. EPIVAL [Concomitant]
     Active Substance: DIVALPROEX SODIUM
     Indication: PRODUCT USED FOR UNKNOWN INDICATION
     Dosage: UNK (1 OF 250 MG) (AT NIGHT)
     Route: 048
     Dates: start: 2015

REACTIONS (2)
  - Hypertension [Unknown]
  - Infarction [Unknown]

NARRATIVE: CASE EVENT DATE: 2015
